FAERS Safety Report 4335487-6 (Version None)
Quarter: 2004Q2

REPORT INFORMATION
  Report Type: 
  Country: None (occurrence: None)
  Receive Date: 20040406
  Receipt Date: 20040325
  Transmission Date: 20050107
  Serious: Yes (Hospitalization, Other)
  Sender: FDA-Public Use
  Company Number: HQWYE535010JUN03

PATIENT
  Age: 45 Year
  Sex: Male
  Weight: 68.1 kg

DRUGS (5)
  1. MYLOTARG [Suspect]
     Indication: ACUTE MYELOID LEUKAEMIA
     Dosage: 9 MG/M^2 1X PER 1 DAY
     Route: 042
     Dates: start: 20030519, end: 20030519
  2. MULTIVITAMINS, PLAIN (MULTIVITAMINS, PLAIN) [Concomitant]
  3. PROTONIX [Concomitant]
  4. BACTRIM DS [Concomitant]
  5. ATIVAN [Concomitant]

REACTIONS (10)
  - CHILLS [None]
  - FEBRILE NEUTROPENIA [None]
  - HEPATOMEGALY [None]
  - LIVER DISORDER [None]
  - OEDEMA [None]
  - PAIN [None]
  - PNEUMONIA [None]
  - PULMONARY OEDEMA [None]
  - RENAL FAILURE [None]
  - VENOOCCLUSIVE LIVER DISEASE [None]
